FAERS Safety Report 9858280 (Version 1)
Quarter: 2014Q1

REPORT INFORMATION
  Report Type: Spontaneous
  Country: US (occurrence: None)
  Receive Date: 20140129
  Receipt Date: 20140129
  Transmission Date: 20141002
  Serious: Yes (Hospitalization)
  Sender: FDA-Public Use
  Company Number: None

PATIENT
  Age: 95 Year
  Sex: Male
  Weight: 86.5 kg

DRUGS (2)
  1. FUROSEMIDE [Suspect]
     Indication: FLUID OVERLOAD
     Route: 048
     Dates: start: 20131212, end: 20131228
  2. LISINOPRIL [Suspect]
     Indication: HYPERTENSION
     Route: 048
     Dates: start: 20131212, end: 20131216

REACTIONS (1)
  - Renal failure acute [None]
